FAERS Safety Report 9028680 (Version 5)
Quarter: 2013Q2

REPORT INFORMATION
  Report Type: Report from Study
  Country: AU (occurrence: AU)
  Receive Date: 20130124
  Receipt Date: 20130617
  Transmission Date: 20140414
  Serious: Yes (Life-Threatening, Hospitalization, Disabling)
  Sender: FDA-Public Use
  Company Number: PHHY2013AU005906

PATIENT
  Age: 38 Year
  Sex: Male

DRUGS (2)
  1. CLOZARIL [Suspect]
     Dosage: 600 MG, UNK
     Dates: start: 20040209, end: 20130110
  2. SODIUM VALPROATE [Concomitant]
     Indication: AFFECTIVE DISORDER
     Dosage: 500 MG, BID

REACTIONS (7)
  - Poisoning deliberate [Not Recovered/Not Resolved]
  - Malaise [Unknown]
  - Consciousness fluctuating [Unknown]
  - Mental impairment [Recovered/Resolved]
  - Haemoglobin decreased [Unknown]
  - Antipsychotic drug level increased [Unknown]
  - Drug ineffective [Unknown]
